FAERS Safety Report 8443674-0 (Version None)
Quarter: 2012Q2

REPORT INFORMATION
  Report Type: 
  Country: None (occurrence: None)
  Receive Date: 20120606
  Receipt Date: 20120530
  Transmission Date: 20120825
  Serious: Yes (Hospitalization, Other)
  Sender: FDA-Public Use
  Company Number: 2012SP016456

PATIENT
  Age: 63 Year
  Sex: Male
  Weight: 72 kg

DRUGS (18)
  1. PEGINTERFERON ALFA-2B [Suspect]
     Indication: HEPATITIS C
     Dosage: 1.5;1.2 MCG/KG, QW, SC
     Route: 058
     Dates: start: 20120207, end: 20120307
  2. PEGINTERFERON ALFA-2B [Suspect]
     Indication: HEPATITIS C
     Dosage: 1.5;1.2 MCG/KG, QW, SC
     Route: 058
     Dates: start: 20120207
  3. SEDEKOPAN [Concomitant]
  4. PAXIL [Concomitant]
  5. CONIEL (BENIDIPINE HYDROCHLORIDE) [Suspect]
     Indication: PRODUCT USED FOR UNKNOWN INDICATION
     Dosage: UNK, PO
     Route: 048
  6. ALLOPURINOL [Concomitant]
  7. REBETOL [Suspect]
     Indication: HEPATITIS C
     Dosage: 1000;800;600;200;400 MG, QD, PO
     Route: 048
     Dates: start: 20120307, end: 20120309
  8. REBETOL [Suspect]
     Indication: HEPATITIS C
     Dosage: 1000;800;600;200;400 MG, QD, PO
     Route: 048
     Dates: start: 20120424, end: 20120430
  9. REBETOL [Suspect]
     Indication: HEPATITIS C
     Dosage: 1000;800;600;200;400 MG, QD, PO
     Route: 048
     Dates: start: 20120207, end: 20120306
  10. REBETOL [Suspect]
     Indication: HEPATITIS C
     Dosage: 1000;800;600;200;400 MG, QD, PO
     Route: 048
     Dates: start: 20120310
  11. REBETOL [Suspect]
     Indication: HEPATITIS C
     Dosage: 1000;800;600;200;400 MG, QD, PO
     Route: 048
     Dates: start: 20120501
  12. REBETOL [Suspect]
     Indication: HEPATITIS C
     Dosage: 1000;800;600;200;400 MG, QD, PO
     Route: 048
     Dates: start: 20120329, end: 20120423
  13. ALLOPURINOL [Concomitant]
  14. CLOBETASOL PROPIONATE [Concomitant]
  15. TELAVIC (TELAPREVIR) (INVESTIGATIONAL DRUG) (2250 MG) [Suspect]
     Indication: HEPATITIS C
     Dosage: 2250;1500 MG, QD, PO
     Route: 048
     Dates: start: 20120417, end: 20120430
  16. TELAVIC (TELAPREVIR) (INVESTIGATIONAL DRUG) (2250 MG) [Suspect]
     Indication: HEPATITIS C
     Dosage: 2250;1500 MG, QD, PO
     Route: 048
     Dates: start: 20120207, end: 20120307
  17. TELAVIC (TELAPREVIR) (INVESTIGATIONAL DRUG) (2250 MG) [Suspect]
     Indication: HEPATITIS C
     Dosage: 2250;1500 MG, QD, PO
     Route: 048
     Dates: start: 20120308, end: 20120324
  18. FAMOTIDINE [Concomitant]

REACTIONS (12)
  - VOMITING [None]
  - DECREASED APPETITE [None]
  - SYNCOPE [None]
  - RENAL DISORDER [None]
  - RASH [None]
  - BLOOD CREATININE INCREASED [None]
  - GAIT DISTURBANCE [None]
  - BLOOD UREA INCREASED [None]
  - HYPOTENSION [None]
  - ANAEMIA [None]
  - HYPERURICAEMIA [None]
  - DIZZINESS [None]
